FAERS Safety Report 17571791 (Version 1)
Quarter: 2020Q1

REPORT INFORMATION
  Report Type: Spontaneous
  Country: US (occurrence: US)
  Receive Date: 20200320
  Receipt Date: 20200320
  Transmission Date: 20200409
  Serious: Yes (Hospitalization, Other)
  Sender: FDA-Public Use
  Company Number: None

PATIENT
  Age: 26 Year
  Sex: Male
  Weight: 67.5 kg

DRUGS (1)
  1. FINASTERIDE. [Suspect]
     Active Substance: FINASTERIDE
     Indication: ALOPECIA
     Dosage: ?          QUANTITY:1 TABLET(S);?
     Route: 048
     Dates: start: 20190610, end: 20190816

REACTIONS (13)
  - Testicular pain [None]
  - Anxiety [None]
  - Libido decreased [None]
  - Chest pain [None]
  - Asthenia [None]
  - Muscle atrophy [None]
  - Presyncope [None]
  - Testicular disorder [None]
  - Dyspnoea [None]
  - Organic erectile dysfunction [None]
  - Pain in jaw [None]
  - Musculoskeletal pain [None]
  - Pain in extremity [None]

NARRATIVE: CASE EVENT DATE: 20200320
